FAERS Safety Report 5566818-7 (Version None)
Quarter: 2007Q4

REPORT INFORMATION
  Report Type: 
  Country: None (occurrence: None)
  Receive Date: 20071219
  Receipt Date: 20071217
  Transmission Date: 20080405
  Serious: Yes (Other)
  Sender: FDA-Public Use
  Company Number: B0500067A

PATIENT
  Age: 51 Year
  Sex: Female

DRUGS (1)
  1. CLENIL [Suspect]
     Indication: ASTHMA
     Route: 055
     Dates: start: 20071107, end: 20071108

REACTIONS (2)
  - LIP SWELLING [None]
  - RASH [None]
